FAERS Safety Report 6080825-X (Version None)
Quarter: 2009Q1

REPORT INFORMATION
  Report Type: 
  Country: None (occurrence: None)
  Receive Date: 20090217
  Receipt Date: 20090209
  Transmission Date: 20090719
  Serious: Yes (Life-Threatening, Hospitalization)
  Sender: FDA-Public Use
  Company Number: TR-SANOFI-SYNTHELABO-A01200901308

PATIENT
  Age: 21 Year
  Sex: Male

DRUGS (1)
  1. CHLOROQUINE PHOSPHATE [Suspect]
     Indication: PULMONARY HAEMOSIDEROSIS
     Dosage: 250 MG
     Route: 065

REACTIONS (7)
  - ATRIOVENTRICULAR BLOCK COMPLETE [None]
  - BRADYCARDIA [None]
  - CARDIAC ARREST [None]
  - CIRCULATORY COLLAPSE [None]
  - DRUG TOXICITY [None]
  - ELECTROCARDIOGRAM QT PROLONGED [None]
  - VENTRICULAR FIBRILLATION [None]
